FAERS Safety Report 11742078 (Version 1)
Quarter: 2015Q4

REPORT INFORMATION
  Report Type: Spontaneous
  Country: US (occurrence: None)
  Receive Date: 20151113
  Receipt Date: 20151113
  Transmission Date: 20160304
  Serious: No
  Sender: FDA-Public Use
  Company Number: None

PATIENT
  Age: 70 Year
  Sex: Female

DRUGS (5)
  1. LISINOPRIL. [Concomitant]
     Active Substance: LISINOPRIL
  2. INLYTA [Suspect]
     Active Substance: AXITINIB
     Indication: RENAL CANCER
     Route: 048
     Dates: start: 20150326
  3. LEVETIRACETA [Concomitant]
  4. LABETOLOL [Concomitant]
     Active Substance: LABETALOL HYDROCHLORIDE
  5. CALC ACETATE [Concomitant]

REACTIONS (3)
  - Drug dose omission [None]
  - Hot flush [None]
  - Cough [None]
